FAERS Safety Report 7385938-8 (Version None)
Quarter: 2011Q1

REPORT INFORMATION
  Report Type: 
  Country: None (occurrence: None)
  Receive Date: 20110331
  Receipt Date: 20110322
  Transmission Date: 20110831
  Serious: Yes (Hospitalization)
  Sender: FDA-Public Use
  Company Number: JP-ASTRAZENECA-2011SE14266

PATIENT
  Age: 63 Year
  Sex: Male
  Weight: 51 kg

DRUGS (16)
  1. MAGNESIUM OXIDE [Concomitant]
     Indication: GASTRITIS
     Dosage: DOSE UNKNOWN
     Route: 048
     Dates: start: 20101001, end: 20110130
  2. L-GLUTAMINE [Concomitant]
     Indication: GASTRITIS
     Dosage: DOSE UNKNOWN
     Route: 048
     Dates: start: 20101001, end: 20110130
  3. PNEUMOVAX NP [Concomitant]
     Indication: IMMUNISATION
     Dosage: DOSE UNKNOWN
     Route: 065
     Dates: start: 20101207, end: 20101207
  4. NITROGLYCERIN [Concomitant]
     Indication: CATHETERISATION CARDIAC
     Dosage: DOSE UNKNOWN
     Route: 065
     Dates: start: 20110127, end: 20110127
  5. XYLOCAINE [Concomitant]
     Indication: CATHETERISATION CARDIAC
     Dosage: DOSE UNKNOWN
     Route: 065
     Dates: start: 20110127, end: 20110127
  6. SULTANOL [Concomitant]
     Indication: CHRONIC OBSTRUCTIVE PULMONARY DISEASE
     Route: 055
     Dates: start: 20100907
  7. SODIUM BICARBONATE [Concomitant]
     Indication: GASTRITIS
     Dosage: DOSE UNKNOWN
     Route: 048
     Dates: start: 20101001, end: 20110130
  8. HEPARIN SODIUM [Concomitant]
     Indication: CATHETERISATION CARDIAC
     Dosage: DOSE UNKNOWN
     Route: 065
     Dates: start: 20110127, end: 20110127
  9. PROTAMINE SULFATE [Concomitant]
     Indication: CATHETERISATION CARDIAC
     Dosage: DOSE UNKNOWN
     Route: 065
     Dates: start: 20110127, end: 20110127
  10. BONALON 35MG [Concomitant]
     Indication: OSTEOPOROSIS
     Route: 048
     Dates: start: 20100907
  11. GENTIAN [Concomitant]
     Indication: GASTRITIS
     Dosage: DOSE UNKNOWN
     Route: 048
     Dates: start: 20101001, end: 20110130
  12. DRIED ALUMINUM HYDROXIDE GEL [Concomitant]
     Indication: GASTRITIS
     Dosage: DOSE UNKNOWN
     Route: 048
     Dates: start: 20101001, end: 20110130
  13. GASMOTIN [Concomitant]
     Indication: GASTRITIS
     Dosage: DOSE UNKNOWN
     Route: 048
     Dates: start: 20101001, end: 20110130
  14. SYMBICORT [Suspect]
     Indication: CHRONIC OBSTRUCTIVE PULMONARY DISEASE
     Dosage: 160/4.5 UG TWO INHALATION TWO TIMES A DAY
     Route: 055
     Dates: start: 20100929
  15. SPIRIVA [Concomitant]
     Indication: CHRONIC OBSTRUCTIVE PULMONARY DISEASE
     Route: 055
  16. APLACE [Concomitant]
     Indication: GASTRITIS
     Dosage: DOSE UNKNOWN
     Route: 048
     Dates: start: 20101001, end: 20110130

REACTIONS (1)
  - CHRONIC OBSTRUCTIVE PULMONARY DISEASE [None]
